FAERS Safety Report 13982491 (Version 2)
Quarter: 2017Q3

REPORT INFORMATION
  Report Type: Spontaneous
  Country: FR (occurrence: FR)
  Receive Date: 20170918
  Receipt Date: 20170927
  Transmission Date: 20171128
  Serious: Yes (Other)
  Sender: FDA-Public Use
  Company Number: FR-MERCK KGAA-2026631

PATIENT
  Age: 42 Year
  Sex: Female

DRUGS (9)
  1. NOVOTHYROX [Suspect]
     Active Substance: LEVOTHYROXINE SODIUM
     Indication: THYROID CANCER
     Route: 048
     Dates: start: 201704
  2. FEROGRAD (KENDURAL C) (ASCORBIC  ACID, FERROUS SULFATE) [Concomitant]
     Dates: start: 2007
  3. ALLERGODIL (AZELASTINE HYDROCHLORIDE) [Concomitant]
     Route: 045
     Dates: start: 2015
  4. RHINOMAXIL (BECLOMETASONE DIPROPIONATE) [Concomitant]
     Active Substance: BECLOMETHASONE DIPROPIONATE
     Route: 045
  5. MICROVAL (LEVONORGESTREL) (COATED TABLET) (LEVONORGESTREL [Concomitant]
     Dates: start: 20170720
  6. STILNOX (ZOLPIDEM TARTRATE) [Concomitant]
     Route: 048
     Dates: start: 2011
  7. AERIUS (EBASTINE) [Concomitant]
     Active Substance: EBASTINE
     Route: 048
     Dates: start: 2015
  8. DEPAKOTE [Concomitant]
     Active Substance: DIVALPROEX SODIUM
     Route: 048
     Dates: start: 2011
  9. SEROPRAM (CITALOPRAM HYDROBROMIDE), [Concomitant]
     Route: 048
     Dates: start: 2011

REACTIONS (7)
  - Vertigo [Not Recovered/Not Resolved]
  - Fatigue [Not Recovered/Not Resolved]
  - Myalgia [Not Recovered/Not Resolved]
  - Hyperthyroidism [Not Recovered/Not Resolved]
  - Alopecia [Not Recovered/Not Resolved]
  - Abdominal pain [Not Recovered/Not Resolved]
  - Trigeminal neuralgia [Not Recovered/Not Resolved]

NARRATIVE: CASE EVENT DATE: 20170823
